FAERS Safety Report 23379759 (Version 1)
Quarter: 2024Q1

REPORT INFORMATION
  Report Type: Report from Study
  Country: MX (occurrence: MX)
  Receive Date: 20240108
  Receipt Date: 20240108
  Transmission Date: 20240410
  Serious: Yes (Death, Hospitalization, Other)
  Sender: FDA-Public Use
  Company Number: MX-TAKEDA-2023TUS067017

PATIENT
  Age: 72 Year
  Sex: Male
  Weight: 67 kg

DRUGS (2)
  1. PONATINIB [Suspect]
     Active Substance: PONATINIB
     Indication: Chronic myeloid leukaemia
     Dosage: UNK UNK, QD
     Route: 048
     Dates: start: 20230318, end: 202308
  2. PONATINIB [Suspect]
     Active Substance: PONATINIB
     Dosage: UNK UNK, QD
     Route: 048
     Dates: start: 202311, end: 20231215

REACTIONS (6)
  - Multiple organ dysfunction syndrome [Fatal]
  - Disorientation [Recovering/Resolving]
  - Haemoglobin decreased [Recovering/Resolving]
  - Dizziness [Recovering/Resolving]
  - Asthenia [Recovering/Resolving]
  - Dyspnoea [Recovering/Resolving]

NARRATIVE: CASE EVENT DATE: 20230627
